FAERS Safety Report 5792257-X (Version None)
Quarter: 2008Q2

REPORT INFORMATION
  Report Type: 
  Country: None (occurrence: None)
  Receive Date: 20080626
  Receipt Date: 20080218
  Transmission Date: 20081010
  Serious: No
  Sender: FDA-Public Use
  Company Number: US-ASTRAZENECA-2008UW03398

PATIENT
  Age: 1 Year
  Sex: Male
  Weight: 13.2 kg

DRUGS (4)
  1. PULMICORT RESPULES [Suspect]
     Indication: ASTHMA
     Route: 055
     Dates: start: 20071201
  2. ZYRTEC [Concomitant]
  3. ALBUTEROL [Concomitant]
     Route: 055
  4. OMNICEF [Concomitant]

REACTIONS (2)
  - EYE PAIN [None]
  - OCULAR HYPERAEMIA [None]
